FAERS Safety Report 25200530 (Version 1)
Quarter: 2025Q2

REPORT INFORMATION
  Report Type: Report from Study
  Country: US (occurrence: US)
  Receive Date: 20250415
  Receipt Date: 20250415
  Transmission Date: 20250717
  Serious: Yes (Hospitalization)
  Sender: MERCK SHARP AND DOHME
  Company Number: US-009507513-2408USA006968

PATIENT
  Age: 65 Year
  Sex: Female

DRUGS (1)
  1. JANUMET [Suspect]
     Active Substance: METFORMIN HYDROCHLORIDE\SITAGLIPTIN PHOSPHATE
     Dosage: DOSE DESCRIPTION : 50/500 MG, BID, CONCENTRATION: 50/500 MG
     Route: 048

REACTIONS (7)
  - Knee arthroplasty [Not Recovered/Not Resolved]
  - Product use issue [Unknown]
  - Illness [Unknown]
  - Product dose omission issue [Unknown]
  - Product dose omission issue [Unknown]
  - Infection [Unknown]
  - Knee arthroplasty [Unknown]

NARRATIVE: CASE EVENT DATE: 20240819
